FAERS Safety Report 20375025 (Version 1)
Quarter: 2022Q1

REPORT INFORMATION
  Report Type: Spontaneous
  Country: US (occurrence: None)
  Receive Date: 20220124
  Receipt Date: 20220124
  Transmission Date: 20220423
  Serious: Yes (Other)
  Sender: FDA-Public Use
  Company Number: None

PATIENT
  Age: 72 Year
  Sex: Male
  Weight: 103.95 kg

DRUGS (5)
  1. BACLOFEN [Suspect]
     Active Substance: BACLOFEN
     Indication: Arthralgia
     Dosage: OTHER QUANTITY : 1 TABLET(S);?FREQUENCY : 3 TIMES A DAY;?
     Route: 048
     Dates: start: 20220122, end: 20220123
  2. CALCITRIOL [Concomitant]
     Active Substance: CALCITRIOL
  3. K-PHOS NEUTRAL [Concomitant]
  4. CALCIUM [Concomitant]
     Active Substance: CALCIUM
  5. TYLENOL [Concomitant]
     Active Substance: ACETAMINOPHEN

REACTIONS (7)
  - Fatigue [None]
  - Dyspnoea [None]
  - Dyspnoea [None]
  - Contraindicated product administered [None]
  - Confusional state [None]
  - Therapy cessation [None]
  - Depressed level of consciousness [None]

NARRATIVE: CASE EVENT DATE: 20220122
